FAERS Safety Report 4979456-1 (Version None)
Quarter: 2006Q2

REPORT INFORMATION
  Report Type: 
  Country: None (occurrence: None)
  Receive Date: 20060421
  Receipt Date: 20051004
  Transmission Date: 20061013
  Serious: Yes (Hospitalization)
  Sender: FDA-Public Use
  Company Number: US-MERCK-0510USA02693

PATIENT
  Age: 64 Year
  Sex: Female
  Weight: 95 kg

DRUGS (2)
  1. VIOXX [Suspect]
     Indication: PAIN MANAGEMENT
     Route: 048
     Dates: start: 20010101, end: 20011016
  2. VIOXX [Suspect]
     Indication: ARTHRITIS
     Route: 048
     Dates: start: 20010101, end: 20011016

REACTIONS (9)
  - ACUTE MYOCARDIAL INFARCTION [None]
  - ARTHRALGIA [None]
  - CARDIAC FAILURE CONGESTIVE [None]
  - EXOSTOSIS [None]
  - GASTROINTESTINAL DISORDER [None]
  - IMPLANTABLE DEFIBRILLATOR INSERTION [None]
  - ISCHAEMIC STROKE [None]
  - MYOCARDIAL ISCHAEMIA [None]
  - URINARY TRACT INFECTION [None]
